FAERS Safety Report 20133790 (Version 1)
Quarter: 2021Q4

REPORT INFORMATION
  Report Type: Other
  Country: CA (occurrence: CA)
  Receive Date: 20211201
  Receipt Date: 20211201
  Transmission Date: 20220304
  Serious: Yes (Other)
  Sender: FDA-Public Use
  Company Number: CA-APOTEX-2021AP045829

PATIENT
  Age: 69 Year
  Sex: Female
  Weight: 99.773 kg

DRUGS (1)
  1. ROSUVASTATIN [Suspect]
     Active Substance: ROSUVASTATIN
     Indication: Hyperlipidaemia
     Dosage: 5 MILLIGRAM, QD
     Route: 048

REACTIONS (4)
  - Product substitution issue [Recovered/Resolved]
  - Pruritus [Recovered/Resolved]
  - Rash [Recovered/Resolved]
  - Urticaria [Recovered/Resolved]
